FAERS Safety Report 5791841-7 (Version None)
Quarter: 2008Q2

REPORT INFORMATION
  Report Type: 
  Country: None (occurrence: None)
  Receive Date: 20080626
  Receipt Date: 20080311
  Transmission Date: 20081010
  Serious: No
  Sender: FDA-Public Use
  Company Number: A0714577A

PATIENT
  Age: 79 Year
  Sex: Female

DRUGS (1)
  1. ALLI [Suspect]
     Dates: start: 20080221, end: 20080302

REACTIONS (3)
  - HEADACHE [None]
  - RECTAL DISCHARGE [None]
  - STOMACH DISCOMFORT [None]
